FAERS Safety Report 5711079-9 (Version None)
Quarter: 2008Q2

REPORT INFORMATION
  Report Type: 
  Country: None (occurrence: None)
  Receive Date: 20080417
  Receipt Date: 20080417
  Transmission Date: 20081010
  Serious: Yes (Other)
  Sender: FDA-Public Use
  Company Number: None

PATIENT
  Age: 50 Year
  Sex: Female

DRUGS (12)
  1. PALIPERIDONE -INVEGA-  6MG  JANSSEN [Suspect]
     Indication: SCHIZOAFFECTIVE DISORDER
     Dosage: 6MG DAILY PO
     Route: 048
     Dates: start: 20080411, end: 20080414
  2. OLANZAPINE [Concomitant]
  3. SENNA [Concomitant]
  4. DOCUSATE SODIUM [Concomitant]
  5. PAROXETINE HCL [Concomitant]
  6. LORAZEPAM [Concomitant]
  7. LAMOTRIGINE [Concomitant]
  8. GABAPENTIN [Concomitant]
  9. LEVOTHYROXINE SODIUM [Concomitant]
  10. THEREMS M MULTIVITAMIN [Concomitant]
  11. LANTANOPROST [Concomitant]
  12. ATORVASTATIN CALCIUM [Concomitant]

REACTIONS (1)
  - CONVULSION [None]
